FAERS Safety Report 7358583-8 (Version None)
Quarter: 2011Q1

REPORT INFORMATION
  Report Type: 
  Country: None (occurrence: None)
  Receive Date: 20110317
  Receipt Date: 20110314
  Transmission Date: 20110831
  Serious: Yes (Other)
  Sender: FDA-Public Use
  Company Number: GB-MERCK-1012GBR00062

PATIENT
  Age: 76 Year
  Sex: Female

DRUGS (2)
  1. COZAAR [Suspect]
     Indication: HYPERTENSION
     Route: 048
     Dates: start: 20100812
  2. AMLODIPINE [Concomitant]
     Route: 065
     Dates: start: 20080401

REACTIONS (1)
  - PEMPHIGOID [None]
